FAERS Safety Report 21273672 (Version 1)
Quarter: 2022Q3

REPORT INFORMATION
  Report Type: Spontaneous
  Country: US (occurrence: None)
  Receive Date: 20220830
  Receipt Date: 20220830
  Transmission Date: 20221027
  Serious: Yes (Hospitalization)
  Sender: FDA-Public Use
  Company Number: None

PATIENT
  Sex: Female

DRUGS (16)
  1. PROMACTA [Suspect]
     Active Substance: ELTROMBOPAG OLAMINE
     Indication: Hypersensitivity pneumonitis
     Dosage: FREQUENCY : DAILY;?
     Route: 048
     Dates: start: 20220805
  2. BREO ELLIPTA INH [Concomitant]
  3. CALCIUM TAB [Concomitant]
  4. CLARITIN TAB [Concomitant]
  5. FLONASE ALGY SPR [Concomitant]
  6. IBUPROFEN TAB [Concomitant]
  7. LASIX TAB [Concomitant]
  8. MUCINEX TAB ER [Concomitant]
  9. MULTIVITAMIN TAB DAILY [Concomitant]
  10. PREDNISONE [Concomitant]
     Active Substance: PREDNISONE
  11. PRILOSEC OTC TAB [Concomitant]
  12. SINGULAIR TAB [Concomitant]
  13. SODIUM CHLOR SOL IRR [Concomitant]
  14. SYMBICORT AER [Concomitant]
  15. VITAMIN C TAB [Concomitant]
  16. VITAMIN D CAP [Concomitant]

REACTIONS (1)
  - Product dose omission issue [None]
